FAERS Safety Report 5253677-5 (Version None)
Quarter: 2007Q1

REPORT INFORMATION
  Report Type: 
  Country: None (occurrence: None)
  Receive Date: 20070301
  Receipt Date: 20070220
  Transmission Date: 20070707
  Serious: Yes (Hospitalization)
  Sender: FDA-Public Use
  Company Number: FR-PFIZER INC-2007014302

PATIENT
  Sex: Male

DRUGS (6)
  1. ADRIBLASTINE [Suspect]
     Route: 042
     Dates: start: 20061023, end: 20061127
  2. BLEOMYCIN [Suspect]
     Route: 042
     Dates: start: 20061023, end: 20061127
  3. VINBLASTINE SULFATE [Suspect]
     Route: 042
     Dates: start: 20061023, end: 20061127
  4. PROCARBAZINE [Suspect]
     Dosage: TEXT:4 DF
     Route: 048
     Dates: start: 20061023, end: 20061204
  5. METHYLPREDNISOLONE 16MG TAB [Concomitant]
     Route: 042
     Dates: start: 20061023, end: 20061127
  6. PREDNISOLONE SODIUM SULFOBENZOATE [Concomitant]
     Route: 048
     Dates: start: 20061024, end: 20061210

REACTIONS (3)
  - ANAEMIA [None]
  - HEPATITIS CHOLESTATIC [None]
  - LEUKOPENIA [None]
